FAERS Safety Report 11719993 (Version 2)
Quarter: 2015Q4

REPORT INFORMATION
  Report Type: Report from Study
  Country: TR (occurrence: TR)
  Receive Date: 20151110
  Receipt Date: 20151118
  Transmission Date: 20160304
  Serious: Yes (Other)
  Sender: FDA-Public Use
  Company Number: TR-ROCHE-1656590

PATIENT

DRUGS (2)
  1. ALTEPLASE [Suspect]
     Active Substance: ALTEPLASE
     Indication: DEEP VEIN THROMBOSIS
     Dosage: DOSE PER APPLICATION AND DAILY DOSE: 5-10 MG PER SEGMENT ?DOSE PER APPLICATION AND DAILY DOSE: 10 ML
     Route: 042
  2. HEPARIN [Concomitant]
     Active Substance: HEPARIN SODIUM
     Indication: ANTICOAGULANT THERAPY
     Dosage: DAILY DOSE: 100 U/KG
     Route: 042

REACTIONS (1)
  - Venous occlusion [Unknown]
